FAERS Safety Report 7810270-5 (Version None)
Quarter: 2011Q4

REPORT INFORMATION
  Report Type: 
  Country: None (occurrence: None)
  Receive Date: 20111012
  Receipt Date: 20110928
  Transmission Date: 20120403
  Serious: Yes (Other)
  Sender: FDA-Public Use
  Company Number: US-ROCHE-1001548

PATIENT
  Sex: Female

DRUGS (5)
  1. MYCOPHENOLATE MOFETIL (CELLCEPT) [Suspect]
  2. PIMECROLIMUS [Concomitant]
     Indication: CUTANEOUS LUPUS ERYTHEMATOSUS
     Route: 061
  3. HYDROXYCHLOROQUINE SULFATE [Concomitant]
     Indication: CUTANEOUS LUPUS ERYTHEMATOSUS
  4. PREDNISONE TAB [Concomitant]
     Indication: CUTANEOUS LUPUS ERYTHEMATOSUS
  5. MYCOPHENOLATE MOFETIL (CELLCEPT) [Suspect]
     Indication: CUTANEOUS LUPUS ERYTHEMATOSUS

REACTIONS (2)
  - LUPUS NEPHRITIS [None]
  - HERPES ZOSTER [None]
